FAERS Safety Report 25273067 (Version 1)
Quarter: 2025Q2

REPORT INFORMATION
  Report Type: Spontaneous
  Country: JP (occurrence: JP)
  Receive Date: 20250506
  Receipt Date: 20250506
  Transmission Date: 20250717
  Serious: Yes (Life-Threatening, Hospitalization)
  Sender: ACCORD
  Company Number: JP-Accord-482324

PATIENT
  Age: 3 Decade
  Sex: Male

DRUGS (11)
  1. LEVETIRACETAM [Suspect]
     Active Substance: LEVETIRACETAM
     Indication: Status epilepticus
  2. FLUNITRAZEPAM [Concomitant]
     Active Substance: FLUNITRAZEPAM
  3. LORAZEPAM [Concomitant]
     Active Substance: LORAZEPAM
  4. TRIAZOLAM [Concomitant]
     Active Substance: TRIAZOLAM
  5. VALPROIC ACID [Concomitant]
     Active Substance: VALPROIC ACID
  6. AMOXICILLIN\SULBACTAM [Concomitant]
     Active Substance: AMOXICILLIN\SULBACTAM
     Indication: Pneumonia aspiration
  7. OXYGEN [Concomitant]
     Active Substance: OXYGEN
     Dosage: RESERVOIR MASK AT 10 L/MINUTE?INHALATION USE
  8. DEXTROSE [Concomitant]
     Active Substance: DEXTROSE MONOHYDRATE
     Indication: Hypoglycaemia
  9. MIDAZOLAM [Concomitant]
     Active Substance: MIDAZOLAM
     Indication: Sedation
  10. RINGER-ACETAT [Concomitant]
     Indication: Fluid replacement
  11. LEVETIRACETAM [Suspect]
     Active Substance: LEVETIRACETAM
     Indication: Status epilepticus
     Dosage: POST-ADMISSION TO THE ICU

REACTIONS (2)
  - Rhabdomyolysis [Recovered/Resolved]
  - Anticonvulsant drug level decreased [Unknown]
